FAERS Safety Report 14828267 (Version 1)
Quarter: 2018Q2

REPORT INFORMATION
  Report Type: Spontaneous
  Country: US (occurrence: US)
  Receive Date: 20180430
  Receipt Date: 20180430
  Transmission Date: 20180711
  Serious: No
  Sender: FDA-Public Use
  Company Number: US-LNK INTERNATIONAL, INC.-2046848

PATIENT
  Age: 69 Year
  Sex: Female

DRUGS (2)
  1. AMLODIPINE [Concomitant]
     Active Substance: AMLODIPINE BESYLATE
  2. DIPHENHYDRAMINE HCL 25 MG [Suspect]
     Active Substance: DIPHENHYDRAMINE HYDROCHLORIDE
     Indication: EYE PRURITUS

REACTIONS (5)
  - Anal incontinence [None]
  - Facial bones fracture [None]
  - Fall [None]
  - Loss of consciousness [None]
  - Epistaxis [None]
